FAERS Safety Report 14571002 (Version 1)
Quarter: 2018Q1

REPORT INFORMATION
  Report Type: Spontaneous
  Country: JP (occurrence: JP)
  Receive Date: 20180226
  Receipt Date: 20180226
  Transmission Date: 20180509
  Serious: Yes (Other)
  Sender: FDA-Public Use
  Company Number: JP-BRISTOL-MYERS SQUIBB COMPANY-BMS-2018-017605

PATIENT
  Age: 44 Year
  Sex: Male

DRUGS (1)
  1. SPRYCEL [Suspect]
     Active Substance: DASATINIB
     Indication: CHRONIC MYELOID LEUKAEMIA
     Dosage: 100 MG, UNK
     Route: 048
     Dates: start: 20111026, end: 201203

REACTIONS (5)
  - Lower gastrointestinal haemorrhage [Unknown]
  - Thrombocytopenia [Recovered/Resolved]
  - Enterocolitis [Unknown]
  - Cytomegalovirus infection [Unknown]
  - Alopecia [Unknown]

NARRATIVE: CASE EVENT DATE: 20111206
